FAERS Safety Report 13976421 (Version 1)
Quarter: 2017Q3

REPORT INFORMATION
  Report Type: Spontaneous
  Country: JP (occurrence: JP)
  Receive Date: 20170915
  Receipt Date: 20170915
  Transmission Date: 20171128
  Serious: Yes (Other)
  Sender: FDA-Public Use
  Company Number: JP-BAYER-2017-177441

PATIENT

DRUGS (1)
  1. LORATADINE. [Suspect]
     Active Substance: LORATADINE

REACTIONS (3)
  - Nasopharyngitis [None]
  - Seizure [None]
  - Epilepsy [None]
